FAERS Safety Report 13136529 (Version 2)
Quarter: 2018Q1

REPORT INFORMATION
  Report Type: Report from Study
  Country: US (occurrence: US)
  Receive Date: 20170123
  Receipt Date: 20180118
  Transmission Date: 20180508
  Serious: Yes (Other)
  Sender: FDA-Public Use
  Company Number: US-ROCHE-1881963

PATIENT
  Sex: Female
  Weight: 33.8 kg

DRUGS (6)
  1. NUTROPIN AQ [Suspect]
     Active Substance: SOMATROPIN
     Dosage: NUSPIN 10, 0.1 MG DOSING INCREMENTS, 7 INJECTIONS PER WEEK, DISPENSED 1 MONTH SUPPLY AND REFILLED 12
     Route: 058
  2. CLOMIPRAMINE [Concomitant]
     Active Substance: CLOMIPRAMINE
     Route: 065
  3. NUTROPIN AQ [Suspect]
     Active Substance: SOMATROPIN
     Indication: DWARFISM
     Route: 058
     Dates: start: 201701
  4. LUVOX [Concomitant]
     Active Substance: FLUVOXAMINE MALEATE
     Route: 065
  5. NUTROPIN AQ [Suspect]
     Active Substance: SOMATROPIN
     Indication: GROWTH HORMONE DEFICIENCY
     Dosage: NUSPIN PEN
     Route: 058
  6. FISH OIL [Concomitant]
     Active Substance: FISH OIL
     Route: 065

REACTIONS (8)
  - Anxiety [Not Recovered/Not Resolved]
  - Haemoglobin increased [Unknown]
  - Blood alkaline phosphatase increased [Unknown]
  - Coeliac disease [Unknown]
  - Decreased appetite [Not Recovered/Not Resolved]
  - Protein total increased [Unknown]
  - Red cell distribution width decreased [Unknown]
  - Liver function test increased [Not Recovered/Not Resolved]
